FAERS Safety Report 10456134 (Version 1)
Quarter: 2014Q3

REPORT INFORMATION
  Report Type: Spontaneous
  Country: JP (occurrence: JP)
  Receive Date: 20140916
  Receipt Date: 20140916
  Transmission Date: 20150326
  Serious: Yes (Death, Hospitalization)
  Sender: FDA-Public Use
  Company Number: JP-MUNDIPHARMA DS AND PHARMACOVIGILANCE-GBR-2014-0021186

PATIENT
  Age: 54 Year
  Sex: Male

DRUGS (5)
  1. ANTIPYRECTICS [Concomitant]
     Indication: CANCER PAIN
     Dosage: UNK
     Dates: start: 201408
  2. ANALGESICS [Concomitant]
     Active Substance: UNSPECIFIED INGREDIENT
     Indication: CANCER PAIN
     Dosage: UNK
     Dates: start: 201408
  3. ANTICANCER [Concomitant]
     Indication: HEPATIC CANCER
  4. ANTIINFLAMMATORY AGENTS [Concomitant]
     Active Substance: UNSPECIFIED INGREDIENT
     Indication: CANCER PAIN
     Dosage: UNK
     Dates: start: 201408
  5. OXYCONTIN [Suspect]
     Active Substance: OXYCODONE HYDROCHLORIDE
     Indication: CANCER PAIN
     Dosage: 5 MG, DAILY
     Route: 048
     Dates: start: 201408, end: 201408

REACTIONS (2)
  - Coma [Recovered/Resolved]
  - Malignant neoplasm progression [Fatal]

NARRATIVE: CASE EVENT DATE: 201408
